FAERS Safety Report 12450311 (Version 2)
Quarter: 2016Q3

REPORT INFORMATION
  Report Type: Spontaneous
  Country: US (occurrence: US)
  Receive Date: 20160609
  Receipt Date: 20160811
  Transmission Date: 20161109
  Serious: Yes (Hospitalization, Other)
  Sender: FDA-Public Use
  Company Number: US-PFIZER INC-2015478019

PATIENT
  Age: 82 Year
  Sex: Female
  Weight: 59 kg

DRUGS (54)
  1. ASPIRIN /00002701/ [Concomitant]
     Active Substance: ASPIRIN
     Dosage: 81 MG, 1X/DAY
     Dates: start: 2015
  2. MUCINEX [Concomitant]
     Active Substance: GUAIFENESIN
     Indication: LUNG DISORDER
     Dosage: 600 MG, 2X/DAY
  3. ATORVASTATIN [Concomitant]
     Active Substance: ATORVASTATIN
     Indication: BLOOD CHOLESTEROL
     Dosage: 10 MG, 1X/DAY
  4. POTASSIUM [Concomitant]
     Active Substance: POTASSIUM
     Dosage: 20 MG, 1X/DAY (IN MORNING)
  5. COUMADINE [Concomitant]
     Active Substance: WARFARIN SODIUM
     Dosage: 7.5 MG, 1X/DAY (EVERY MONDAY)
  6. PREDNISONE. [Concomitant]
     Active Substance: PREDNISONE
     Indication: LUNG DISORDER
     Dosage: 40 MG, UNK (FOR 3 DAYS)
  7. CENTRUM SILVER /02363801/ [Concomitant]
     Active Substance: MINERALS\VITAMINS
     Indication: SUPPLEMENTATION THERAPY
     Dosage: 1 DF, DAILY
     Route: 048
  8. OMEPRAZOLE. [Concomitant]
     Active Substance: OMEPRAZOLE
     Indication: HIATUS HERNIA
     Dosage: 20 MG, UNK
  9. METOPROLOL. [Concomitant]
     Active Substance: METOPROLOL
     Indication: CARDIAC DISORDER
     Dosage: 25 MG, 2X/DAY (IN MORNING AND AT NIGHT)
     Dates: start: 2015
  10. DILTIAZEM. [Concomitant]
     Active Substance: DILTIAZEM
     Indication: CARDIAC DISORDER
     Dosage: 40 MG, UNK
  11. LOPRESSOR [Concomitant]
     Active Substance: METOPROLOL TARTRATE
     Dosage: 25 MG, 2X/DAY (PATIENT TAKING DIFFERENTLY)
     Route: 048
     Dates: start: 20151028
  12. GUAIFENESIN. [Concomitant]
     Active Substance: GUAIFENESIN
     Indication: COUGH
     Dosage: 400 MG, AS NEEDED (4 TIMES DAILY)
     Route: 048
  13. CALTRATE 600+D [Concomitant]
     Dosage: 1 DF, 2X/DAY (CALCIUM CARBONATE 600MG, COLECALCIFEROL 400MG)
     Route: 048
  14. LIPITOR [Concomitant]
     Active Substance: ATORVASTATIN CALCIUM
     Dosage: 10 MG, 1X/DAY (NIGHTLY)
     Route: 048
     Dates: start: 20150204
  15. VFEND [Suspect]
     Active Substance: VORICONAZOLE
     Dosage: 200 MG, 2X/DAY (ONE MORNING AND NIGHT)
     Route: 048
     Dates: start: 201512
  16. PREDNISONE. [Concomitant]
     Active Substance: PREDNISONE
     Dosage: 10 MG, UNK (FOR 3 DAYS)
  17. ASPIRIN /00002701/ [Concomitant]
     Active Substance: ASPIRIN
     Indication: CARDIAC DISORDER
     Dosage: 81 MG, DAILY
     Route: 048
  18. OMEPRAZOLE. [Concomitant]
     Active Substance: OMEPRAZOLE
     Indication: DYSPHAGIA
  19. ADVAIR HFA [Concomitant]
     Active Substance: FLUTICASONE PROPIONATE\SALMETEROL XINAFOATE
     Dosage: UNK, 2X/DAY (FLUTICASONE PROPIONATE 250MCG, SALMETEROL XINAFOATE 50MCG)(INHALE 1 PUFF INTO THE LUNG)
     Dates: start: 20110113
  20. DELTASONE [Concomitant]
     Active Substance: PREDNISONE
     Dosage: 5 MG, UNK
  21. COUMADINE [Concomitant]
     Active Substance: WARFARIN SODIUM
     Dosage: 5 MG, DAILY
     Route: 048
  22. PREDNISONE. [Concomitant]
     Active Substance: PREDNISONE
     Indication: MYASTHENIA GRAVIS
     Dosage: 5 MG, DAILY
  23. MESTINON [Concomitant]
     Active Substance: PYRIDOSTIGMINE BROMIDE
     Dosage: 180 MG, 1X/DAY (NIGHTLY)
     Route: 048
     Dates: start: 20150402
  24. MYCOPHENOLATE [Concomitant]
     Active Substance: MYCOPHENOLIC ACID
     Indication: MYASTHENIA GRAVIS
     Dosage: 500 MG, 2X/DAY
  25. TYLENOL [Concomitant]
     Active Substance: ACETAMINOPHEN
     Indication: PAIN
     Dosage: 500 MG, 3X/DAY
     Route: 048
     Dates: end: 20151219
  26. LASIX [Concomitant]
     Active Substance: FUROSEMIDE
     Indication: PERIPHERAL SWELLING
     Dosage: 20 MG, DAILY
     Route: 048
     Dates: start: 20150727
  27. KLOR CON M [Concomitant]
     Active Substance: POTASSIUM CHLORIDE
     Dosage: 20 MEQ, DAILY
     Route: 048
     Dates: start: 20151028
  28. DELTASONE [Concomitant]
     Active Substance: PREDNISONE
     Dosage: 5 MG, DAILY
     Route: 048
  29. CHOLECALCIFEROL [Concomitant]
     Active Substance: CHOLECALCIFEROL
     Dosage: 1000 IU, DAILY
     Route: 048
  30. HYDRODIURIL [Concomitant]
     Active Substance: HYDROCHLOROTHIAZIDE
     Dosage: 25 MG, DAILY
     Route: 048
  31. MESTINON [Concomitant]
     Active Substance: PYRIDOSTIGMINE BROMIDE
     Indication: MYASTHENIA GRAVIS
     Dosage: 120 MG, 3X/DAY
     Dates: start: 20110130
  32. DILTIAZEM. [Concomitant]
     Active Substance: DILTIAZEM
     Dosage: 300 MG, 1X/DAY
     Dates: start: 2014
  33. LEVALBUTEROL. [Concomitant]
     Active Substance: LEVALBUTEROL
     Dosage: UNK (NEBULIZER THREE OR FOUR TIMES A DAY)
  34. DELTASONE [Concomitant]
     Active Substance: PREDNISONE
     Dosage: 10 MG, 3X/DAY
     Route: 048
  35. DUONEB [Concomitant]
     Active Substance: ALBUTEROL SULFATE\IPRATROPIUM BROMIDE
     Dosage: UNK (INHALE 1 VIAL INTO THE LUNGS EVERY 8 HOURS IPRATROPIUM 0.02% AND ALBUTEROL 0.083%)
  36. PREDNISONE. [Concomitant]
     Active Substance: PREDNISONE
     Dosage: 30 MG, UNK (FOR 3 DAYS)
  37. PREDNISONE. [Concomitant]
     Active Substance: PREDNISONE
     Dosage: 20 MG, UNK (FOR 3 DAYS)
  38. MESTINON [Concomitant]
     Active Substance: PYRIDOSTIGMINE BROMIDE
     Dosage: 180 MG, UNK (BEFORE BED)
     Dates: start: 1980
  39. VITAMIN D3 [Concomitant]
     Active Substance: CHOLECALCIFEROL
     Dosage: 1000 MG, UNK
  40. CALCIUM +VIT D [Concomitant]
     Active Substance: CALCIUM\VITAMIN D
     Dosage: 600 MG, 2X/DAY
  41. WARFARIN [Concomitant]
     Active Substance: WARFARIN
     Indication: ATRIAL FIBRILLATION
     Dosage: UNK, DAILY (VARIES FROM 2.5 TO 5MG)
     Dates: start: 2015
  42. TYLENOL [Concomitant]
     Active Substance: ACETAMINOPHEN
     Dosage: 300 MG, 3X/DAY
  43. LASIX [Concomitant]
     Active Substance: FUROSEMIDE
     Dosage: 20 MG, 1X/DAY
     Dates: start: 201512
  44. CARDIZEM CD [Concomitant]
     Active Substance: DILTIAZEM HYDROCHLORIDE
     Dosage: 240 MG, DAILY
     Route: 048
     Dates: start: 20151013
  45. DELTASONE [Concomitant]
     Active Substance: PREDNISONE
     Dosage: 40 MG, 3X/DAY
     Route: 048
     Dates: start: 20151205
  46. MESTINON [Concomitant]
     Active Substance: PYRIDOSTIGMINE BROMIDE
     Dosage: 60 MG, 2X/DAY
  47. CENTRUM SILVER /02363801/ [Concomitant]
     Active Substance: MINERALS\VITAMINS
     Dosage: UNK, 1X/DAY
  48. MUCINEX [Concomitant]
     Active Substance: GUAIFENESIN
     Indication: SECRETION DISCHARGE
     Dosage: 1200 MG, 2X/DAY
     Dates: start: 201512
  49. DILTIAZEM. [Concomitant]
     Active Substance: DILTIAZEM
     Dosage: 300 MG, UNK
     Dates: start: 2015
  50. BUDESONIDE. [Concomitant]
     Active Substance: BUDESONIDE
     Indication: DYSPNOEA
     Dosage: UNK (0.5MG/2ML NEBULIZER)
  51. DELTASONE [Concomitant]
     Active Substance: PREDNISONE
     Dosage: 30 MG, 3X/DAY
     Route: 048
  52. DELTASONE [Concomitant]
     Active Substance: PREDNISONE
     Dosage: 20 MG, 3X/DAY
     Route: 048
  53. PRILOSEC [Concomitant]
     Active Substance: OMEPRAZOLE MAGNESIUM
     Dosage: 20 MG, DAILY
     Route: 048
     Dates: start: 20110202
  54. CELLCEPT [Concomitant]
     Active Substance: MYCOPHENOLATE MOFETIL\MYCOPHENOLATE MOFETIL HYDROCHLORIDE
     Dosage: 2000 MG, 2X/DAY (TAKE 1000 MG BY MOUTH 2 TIMES DAILY 2 TABS IN AM AND 2 TABS IN PM)
     Route: 048
     Dates: start: 20110113

REACTIONS (4)
  - Bronchitis [Recovering/Resolving]
  - Pneumonia [Recovering/Resolving]
  - Chronic obstructive pulmonary disease [Unknown]
  - Malaise [Recovering/Resolving]

NARRATIVE: CASE EVENT DATE: 201605
